FAERS Safety Report 6058624-4 (Version None)
Quarter: 2009Q1

REPORT INFORMATION
  Report Type: 
  Country: None (occurrence: None)
  Receive Date: 20090130
  Receipt Date: 20090119
  Transmission Date: 20090719
  Serious: Yes (Other)
  Sender: FDA-Public Use
  Company Number: FR-PFIZER INC-2009158488

PATIENT

DRUGS (3)
  1. LYRICA [Suspect]
     Dosage: FREQUENCY: EVERY DAY;
  2. MORPHINE SULFATE [Interacting]
  3. LASILIX [Concomitant]

REACTIONS (4)
  - COMA [None]
  - DECUBITUS ULCER [None]
  - DRUG INTERACTION [None]
  - SEPSIS [None]
